FAERS Safety Report 7238391-9 (Version None)
Quarter: 2011Q1

REPORT INFORMATION
  Report Type: 
  Country: None (occurrence: None)
  Receive Date: 20110118
  Receipt Date: 20110111
  Transmission Date: 20110831
  Serious: Yes (Death, Hospitalization)
  Sender: FDA-Public Use
  Company Number: 1000018114

PATIENT
  Age: 76 Year
  Sex: Male

DRUGS (21)
  1. NEURONTIN [Concomitant]
  2. FLOMAX (TAMSULOSIN) TAMSULOSIN) [Concomitant]
  3. VITAMIN B-12 (CYANOCOBALAMIN) (CYANOCOBALAMIN) [Concomitant]
  4. LOPRESSOR (METOPROLOL TARTRATE) (METOPROLOL TARTRATE) [Concomitant]
  5. TYLENOL (ACETAMINOPHEN) (ACETAMINOPHEN) [Concomitant]
  6. LIDODERM (LIDOCAINE) (POULTICE OR PATCH) (LIDOCAINE) [Concomitant]
  7. FOLIC ACID [Concomitant]
  8. OXYCODONE HCL [Concomitant]
  9. DILAUDID (HYDROMORPHONE HYDROCHLORIDE) (HYDROMORPHONE HYDROCHLORIDE) [Concomitant]
  10. MIRALAX (MACROGOL) (MACROGOL) [Concomitant]
  11. SENOKOT (SENNA) (SENNA) [Concomitant]
  12. RELAFEN (NABUMETONE) (NABUMETONE) [Concomitant]
  13. COLACE (DOCUSATE SODIUM) (DOCUSATE SODIUM) [Concomitant]
  14. COZAAR [Concomitant]
  15. SPIRIVA (TIOTROPIUM BROMIDE) (TIOTROPIUM BROMIDE) [Concomitant]
  16. FORADIL (FORMOTEROL) (FORMOTEROL) [Concomitant]
  17. TEFLARO [Suspect]
     Indication: STAPHYLOCOCCAL INFECTION
     Dosage: 600 MG (600 MG,2 IN 1 D),INTRAVENOUS (NOT OTHERWISE SPECIFIED)
     Route: 042
     Dates: start: 20101207, end: 20110106
  18. PREDNISONE [Concomitant]
  19. SIMVASTATIN [Concomitant]
  20. COUMADIN (WARFARIN) (WARFARIN) [Concomitant]
  21. INSULIN (INSULIN) (INSULIN) [Concomitant]

REACTIONS (4)
  - LUNG CARCINOMA CELL TYPE UNSPECIFIED STAGE III [None]
  - DEBRIDEMENT [None]
  - PULMONARY HAEMORRHAGE [None]
  - NEOPLASM MALIGNANT [None]
